FAERS Safety Report 24754418 (Version 1)
Quarter: 2024Q4

REPORT INFORMATION
  Report Type: Spontaneous
  Country: US (occurrence: None)
  Receive Date: 20241218
  Receipt Date: 20241218
  Transmission Date: 20250114
  Serious: Yes (Life-Threatening, Hospitalization)
  Sender: Public
  Company Number: None

PATIENT
  Age: 12 Year
  Sex: Male
  Weight: 48.4 kg

DRUGS (1)
  1. ELEVIDYS [Suspect]
     Active Substance: DELANDISTROGENE MOXEPARVOVEC-ROKL
     Indication: Duchenne muscular dystrophy
     Dosage: OTHER FREQUENCY : ONCE;?
     Route: 040
     Dates: start: 20241010, end: 20241010

REACTIONS (5)
  - Dysphagia [None]
  - Atelectasis [None]
  - Immune-mediated myositis [None]
  - Liver injury [None]
  - Respiratory failure [None]

NARRATIVE: CASE EVENT DATE: 20241201
